FAERS Safety Report 7237817-4 (Version None)
Quarter: 2011Q1

REPORT INFORMATION
  Report Type: 
  Country: None (occurrence: None)
  Receive Date: 20110121
  Receipt Date: 20110111
  Transmission Date: 20110831
  Serious: Yes (Hospitalization)
  Sender: FDA-Public Use
  Company Number: CL-ROCHE-753504

PATIENT

DRUGS (2)
  1. BEVACIZUMAB [Suspect]
     Route: 042
     Dates: start: 20100809, end: 20110107
  2. INTERFERON ALFA [Suspect]
     Dosage: DOSE: 3 MU, TIW
     Route: 058
     Dates: start: 20100809, end: 20110107

REACTIONS (1)
  - HYPERKALAEMIA [None]
